FAERS Safety Report 13558996 (Version 3)
Quarter: 2017Q2

REPORT INFORMATION
  Report Type: Other
  Country: IT (occurrence: IT)
  Receive Date: 20170518
  Receipt Date: 20170531
  Transmission Date: 20170830
  Serious: Yes (Other)
  Sender: FDA-Public Use
  Company Number: IT-VALIDUS PHARMACEUTICALS LLC-IT-2017VAL000745

PATIENT
  Age: 85 Year
  Sex: Female

DRUGS (8)
  1. LASIX [Suspect]
     Active Substance: FUROSEMIDE
     Indication: ANURIA
     Dosage: 1 DF, QD
     Route: 048
     Dates: start: 20170101, end: 20170307
  2. LANSOX [Concomitant]
     Active Substance: LANSOPRAZOLE
     Indication: PRODUCT USED FOR UNKNOWN INDICATION
     Dosage: UNK
  3. AMLODIPINE [Concomitant]
     Active Substance: AMLODIPINE BESYLATE
     Indication: PRODUCT USED FOR UNKNOWN INDICATION
     Dosage: UNK
  4. ISOSORBIDE DINITRATE. [Suspect]
     Active Substance: ISOSORBIDE DINITRATE
     Indication: CARDIAC FAILURE
     Dosage: 80 MG, QD
     Route: 048
     Dates: start: 20170101, end: 20170307
  5. CARDURA [Suspect]
     Active Substance: DOXAZOSIN MESYLATE
     Indication: HYPERTENSION
     Dosage: 0.5 DF, QD
     Route: 048
     Dates: start: 20170101, end: 20170307
  6. METOPROLOL                         /00376902/ [Concomitant]
     Active Substance: METOPROLOL
     Indication: PRODUCT USED FOR UNKNOWN INDICATION
     Dosage: UNK
  7. CARDIOASPIRIN [Concomitant]
     Active Substance: ASPIRIN
     Indication: PRODUCT USED FOR UNKNOWN INDICATION
     Dosage: UNK
  8. PLAVIX [Concomitant]
     Active Substance: CLOPIDOGREL BISULFATE
     Indication: PRODUCT USED FOR UNKNOWN INDICATION
     Dosage: UNK

REACTIONS (3)
  - Loss of consciousness [Recovering/Resolving]
  - Lip oedema [Recovering/Resolving]
  - Rash [Unknown]

NARRATIVE: CASE EVENT DATE: 20170307
